FAERS Safety Report 9857555 (Version 2)
Quarter: 2014Q1

REPORT INFORMATION
  Report Type: Spontaneous
  Country: FR (occurrence: FR)
  Receive Date: 20140131
  Receipt Date: 20140213
  Transmission Date: 20141002
  Serious: Yes (Life-Threatening, Hospitalization)
  Sender: FDA-Public Use
  Company Number: PHHY2014FR009533

PATIENT
  Age: 66 Year
  Sex: Male
  Weight: 72 kg

DRUGS (8)
  1. AFINITOR [Suspect]
     Indication: RENAL CANCER
     Dosage: 10 MG
     Dates: start: 20131113, end: 20131224
  2. ARANESP [Concomitant]
     Indication: RENAL FAILURE CHRONIC
     Route: 058
  3. BICARBONATE [Concomitant]
     Indication: SUPPLEMENTATION THERAPY
     Route: 048
  4. CALCIUM + VIT D [Concomitant]
     Indication: SUPPLEMENTATION THERAPY
     Route: 048
  5. NATISPRAY [Concomitant]
     Indication: CORONARY ARTERY INSUFFICIENCY
  6. CORDARONE [Concomitant]
     Indication: ARRHYTHMIA
  7. AMLOR [Concomitant]
     Indication: HYPERTENSION
  8. LASILIX [Concomitant]
     Indication: RENAL FAILURE CHRONIC
     Dosage: 50 MG MORNING AND 80 MG MIDDAY

REACTIONS (9)
  - Haemoptysis [Recovering/Resolving]
  - Pleural effusion [Recovering/Resolving]
  - Dyspnoea [Recovering/Resolving]
  - Chest discomfort [Recovering/Resolving]
  - Breath sounds abnormal [Recovering/Resolving]
  - Oedema peripheral [Recovering/Resolving]
  - Fatigue [Recovering/Resolving]
  - Diarrhoea [Recovering/Resolving]
  - Lung disorder [Unknown]
